FAERS Safety Report 14537132 (Version 1)
Quarter: 2018Q1

REPORT INFORMATION
  Report Type: Spontaneous
  Country: US (occurrence: US)
  Receive Date: 20180215
  Receipt Date: 20180215
  Transmission Date: 20180509
  Serious: Yes (Other)
  Sender: FDA-Public Use
  Company Number: US-SA-2018SA025215

PATIENT
  Age: 59 Year
  Sex: Female
  Weight: 66 kg

DRUGS (3)
  1. ASPIRIN. [Concomitant]
     Active Substance: ASPIRIN
  2. HUMIRA [Suspect]
     Active Substance: ADALIMUMAB
     Indication: PSORIASIS
     Route: 058
     Dates: start: 2014
  3. PLAVIX [Suspect]
     Active Substance: CLOPIDOGREL BISULFATE
     Indication: ANTICOAGULANT THERAPY
     Route: 048

REACTIONS (20)
  - Stent placement [Recovered/Resolved]
  - Arterial occlusive disease [Unknown]
  - Tendonitis [Not Recovered/Not Resolved]
  - Pain in extremity [Not Recovered/Not Resolved]
  - Psoriasis [Recovering/Resolving]
  - Back pain [Recovering/Resolving]
  - Iridoschisis [Unknown]
  - Pain in extremity [Not Recovered/Not Resolved]
  - Varicose vein [Not Recovered/Not Resolved]
  - Gait disturbance [Unknown]
  - Dyspnoea [Recovering/Resolving]
  - Peripheral circulatory failure [Unknown]
  - Aortic perforation [Not Recovered/Not Resolved]
  - Mitral valve prolapse [Not Recovered/Not Resolved]
  - Headache [Unknown]
  - Acquired cardiac septal defect [Unknown]
  - Cardiac murmur [Not Recovered/Not Resolved]
  - Weight decreased [Recovering/Resolving]
  - Blood cholesterol increased [Unknown]
  - Pain in extremity [Recovered/Resolved]

NARRATIVE: CASE EVENT DATE: 2015
